FAERS Safety Report 25862768 (Version 2)
Quarter: 2025Q4

REPORT INFORMATION
  Report Type: Spontaneous
  Country: EU (occurrence: EU)
  Receive Date: 20250930
  Receipt Date: 20251016
  Transmission Date: 20260117
  Serious: Yes (Hospitalization)
  Sender: CHIESI
  Company Number: EU-CHIESI-2025CHF06786

PATIENT
  Age: 7 Year
  Sex: Female
  Weight: 39.3 kg

DRUGS (3)
  1. LAMZEDE [Suspect]
     Active Substance: VELMANASE ALFA-TYCV
     Indication: Alpha-mannosidosis
     Dosage: 38 MILLIGRAM, QW
     Route: 042
     Dates: start: 202401
  2. LAMZEDE [Suspect]
     Active Substance: VELMANASE ALFA-TYCV
     Dosage: 38 MILLIGRAM, QW
     Route: 042
     Dates: start: 20250910
  3. LAMZEDE [Suspect]
     Active Substance: VELMANASE ALFA-TYCV
     Dosage: 38 MILLIGRAM, QW
     Route: 042
     Dates: start: 20250924

REACTIONS (1)
  - Arthropathy [Recovered/Resolved]

NARRATIVE: CASE EVENT DATE: 20250918
